FAERS Safety Report 24565163 (Version 1)
Quarter: 2024Q4

REPORT INFORMATION
  Report Type: Spontaneous
  Country: US (occurrence: None)
  Receive Date: 20241029
  Receipt Date: 20241029
  Transmission Date: 20250115
  Serious: Yes (Death)
  Sender: Public
  Company Number: None

PATIENT
  Age: 75 Year
  Sex: Female

DRUGS (11)
  1. COLLAGENASE SANTYL [Suspect]
     Active Substance: COLLAGENASE CLOSTRIDIUM HISTOLYTICUM
     Indication: Wound
     Dosage: FREQUENCY : TWICE A DAY;?
     Route: 061
     Dates: start: 20241005
  2. HYOSCYAMINE [Concomitant]
     Active Substance: HYOSCYAMINE
  3. ATROPINE [Concomitant]
     Active Substance: ATROPINE
  4. MESALAMINE [Concomitant]
     Active Substance: MESALAMINE
  5. FUROSEMIDE [Concomitant]
     Active Substance: FUROSEMIDE
  6. 0MEPRAZOLE [Concomitant]
  7. HYDROCODONE BITARTRATE AND ACETAMINOPHEN [Concomitant]
     Active Substance: ACETAMINOPHEN\HYDROCODONE BITARTRATE
  8. OXYBUTYNIN [Concomitant]
     Active Substance: OXYBUTYNIN
  9. PROMETHAGAN [Concomitant]
  10. METOCLOMPRAMIDE [Concomitant]
  11. ROSUVASTATIN [Concomitant]
     Active Substance: ROSUVASTATIN

REACTIONS (1)
  - Death [None]

NARRATIVE: CASE EVENT DATE: 20241018
